FAERS Safety Report 6868083-7 (Version None)
Quarter: 2010Q2

REPORT INFORMATION
  Report Type: 
  Country: None (occurrence: None)
  Receive Date: 20100528
  Receipt Date: 20100420
  Transmission Date: 20101027
  Serious: No
  Sender: FDA-Public Use
  Company Number: 2010028487

PATIENT
  Age: 68 Year
  Sex: Female
  Weight: 112 kg

DRUGS (4)
  1. TOVIAZ [Suspect]
     Dosage: 4 MG, 1X/DAY
  2. FLUOXETINE HCL [Concomitant]
  3. GABAPENTIN [Concomitant]
  4. SIMVASTATIN [Concomitant]

REACTIONS (1)
  - DRUG INEFFECTIVE [None]
